FAERS Safety Report 10306444 (Version 2)
Quarter: 2014Q3

REPORT INFORMATION
  Report Type: Spontaneous
  Country: US (occurrence: US)
  Receive Date: 20140715
  Receipt Date: 20140715
  Transmission Date: 20150326
  Serious: No
  Sender: FDA-Public Use
  Company Number: US-PFIZER INC-2014146389

PATIENT
  Age: 71 Year
  Sex: Female

DRUGS (33)
  1. VOLTAREN [Concomitant]
     Active Substance: DICLOFENAC SODIUM
     Dosage: 2 G, 4X/DAY AS NEEDED
  2. TRIAMTERENE AND HYDROCHLOROTHIZIDE [Concomitant]
     Dosage: 1X/DAY (TRIAMTERENE  37.5 MG/HYDROCHLOROTHIAZIDE 25 MG)
     Route: 048
  3. CALCIUM CITRATE/COLECALCIFEROL [Concomitant]
     Dosage: CALCIUM CITRATE-315 MG, VITAMIN D3-200 MG
     Route: 048
  4. FOLIC ACID. [Concomitant]
     Active Substance: FOLIC ACID
     Dosage: 800 UG, DAILY
     Route: 048
  5. CELEBREX [Suspect]
     Active Substance: CELECOXIB
     Indication: ARTHRALGIA
  6. TOPIRAMATE. [Concomitant]
     Active Substance: TOPIRAMATE
     Dosage: 50 MG, DAILY AT BEDTIME
  7. SOMA [Concomitant]
     Active Substance: CARISOPRODOL
     Dosage: 350 MG, 2X/DAY
     Route: 048
  8. CYMBALTA [Concomitant]
     Active Substance: DULOXETINE HYDROCHLORIDE
     Dosage: 60 MG, 1X/DAY
     Route: 048
  9. PREVACID [Concomitant]
     Active Substance: LANSOPRAZOLE
     Dosage: 30 MG, 2X/DAY
     Route: 048
  10. TRAZODONE [Concomitant]
     Active Substance: TRAZODONE HYDROCHLORIDE
     Dosage: 150 MG, DAILY (50 MG 3 TABLET) AT BEDTIME
     Route: 048
  11. COMPAZINE [Concomitant]
     Active Substance: PROCHLORPERAZINE MALEATE
     Dosage: 10 MG, 3X/DAY(EVERY 8 HOURS)  AS NEEDED
     Route: 048
  12. ZOLOFT [Concomitant]
     Active Substance: SERTRALINE HYDROCHLORIDE
  13. TOPIRAMATE. [Concomitant]
     Active Substance: TOPIRAMATE
     Dosage: 25 MG, 1 TABLET AT BEDTIME FOR 7 DAYS
  14. ALBUTEROL. [Concomitant]
     Active Substance: ALBUTEROL
     Dosage: INHALE 2 PUFFS 4X/DAY
  15. ALTACE [Concomitant]
     Active Substance: RAMIPRIL
     Dosage: 5 MG, 1X/DAY
     Route: 048
  16. ACCOLATE [Concomitant]
     Active Substance: ZAFIRLUKAST
     Dosage: 20 MG, 1X/DAY
     Route: 048
  17. FERREX [Concomitant]
     Dosage: 150 MG, 1X/DAY
  18. KENALOG [Concomitant]
     Active Substance: TRIAMCINOLONE ACETONIDE
     Dosage: 60 MG X1 DOSE
     Route: 030
  19. PREDNISONE. [Concomitant]
     Active Substance: PREDNISONE
     Dosage: 10 MG, 2X/DAY AS NEEDED
     Route: 048
  20. VITAMIN D3 [Concomitant]
     Active Substance: CHOLECALCIFEROL
     Dosage: (2000 IU), 1X/DAY
     Route: 048
  21. ZYFLAMEND [Concomitant]
     Dosage: 1 TABLET 2X/DAY
  22. DULCOLAX [Concomitant]
     Active Substance: BISACODYL OR DOCUSATE SODIUM
     Dosage: 100 MG, DAILY
     Route: 048
  23. ZANTAC [Concomitant]
     Active Substance: RANITIDINE HYDROCHLORIDE
     Dosage: 150 MG, 2X/DAY
  24. VOLTAREN [Concomitant]
     Active Substance: DICLOFENAC SODIUM
     Dosage: 1 % GEL, APPLY 2 GRAMS TO THE HANDS UP TO FOUR TIMES DAILY AS NEEDED
  25. FLUTICASONE [Concomitant]
     Active Substance: FLUTICASONE\FLUTICASONE PROPIONATE
     Dosage: 44 UG, AS NEEDED (INHALE 1 PUFF AS INSTRUCTED AS DIRECTED
  26. LIDODERM [Concomitant]
     Active Substance: LIDOCAINE
  27. EVOXAC [Concomitant]
     Active Substance: CEVIMELINE HYDROCHLORIDE
  28. CELEBREX [Suspect]
     Active Substance: CELECOXIB
     Indication: ARTHRITIS
     Dosage: 200 MG, 1X/DAY
     Route: 048
  29. SANCTURA XR [Concomitant]
     Active Substance: TROSPIUM CHLORIDE
     Dosage: 60 MG, 1X/DAY
     Route: 048
  30. K-DUR [Concomitant]
     Active Substance: POTASSIUM CHLORIDE
     Dosage: 20 MEQ, 3X/DAY
     Route: 048
  31. IMITREX [Concomitant]
     Active Substance: SUMATRIPTAN\SUMATRIPTAN SUCCINATE
     Indication: MIGRAINE
     Dosage: 100 MG, AS NEEDED , MAY REPEAT 1 TAB 2 HRS LATER. MAXIMUM 2 TABLETS IN 1 DAY
  32. LASIX [Concomitant]
     Active Substance: FUROSEMIDE
     Indication: OEDEMA PERIPHERAL
  33. ESTAZOLAM. [Concomitant]
     Active Substance: ESTAZOLAM
     Indication: SLEEP DISORDER
     Dosage: 2-4 MG AT NIGHT

REACTIONS (1)
  - Drug effect incomplete [Unknown]
